FAERS Safety Report 8408297-8 (Version None)
Quarter: 2012Q2

REPORT INFORMATION
  Report Type: 
  Country: None (occurrence: None)
  Receive Date: 20120604
  Receipt Date: 20120604
  Transmission Date: 20120825
  Serious: Yes (Hospitalization, Other)
  Sender: FDA-Public Use
  Company Number: US-PFIZER INC-2012101033

PATIENT
  Sex: Female

DRUGS (5)
  1. ACETAMINOPHEN [Suspect]
     Indication: POSTOPERATIVE CARE
     Dosage: TWICE A DAY
     Route: 048
     Dates: start: 20120411
  2. CORTICOSTEROID NOS [Suspect]
     Indication: POSTOPERATIVE CARE
     Dosage: 3 TABS, 2X/DAY
     Route: 048
  3. IBUPROFEN [Suspect]
     Indication: POSTOPERATIVE CARE
     Dosage: 2-3 TABS TWICE A DAY
     Route: 048
     Dates: start: 20120411
  4. ASCORBIC ACID [Suspect]
     Indication: POSTOPERATIVE CARE
     Dosage: TWICE A DAY
     Route: 048
     Dates: start: 20120411
  5. NEURONTIN [Suspect]
     Indication: POSTOPERATIVE CARE
     Dosage: TWICE A DAY
     Route: 048

REACTIONS (15)
  - TACHYCARDIA [None]
  - ASTHENIA [None]
  - SEDATION [None]
  - ORTHOSTATIC HEART RATE RESPONSE INCREASED [None]
  - HAEMATOCHEZIA [None]
  - ORTHOSTATIC HYPOTENSION [None]
  - FREQUENT BOWEL MOVEMENTS [None]
  - VISION BLURRED [None]
  - HYPOTENSION [None]
  - PHOTOPHOBIA [None]
  - NAUSEA [None]
  - RECTAL HAEMORRHAGE [None]
  - PALLOR [None]
  - HEADACHE [None]
  - SOMNOLENCE [None]
